FAERS Safety Report 9808027 (Version 1)
Quarter: 2014Q1

REPORT INFORMATION
  Report Type: Spontaneous
  Country: PT (occurrence: PT)
  Receive Date: 20140110
  Receipt Date: 20140110
  Transmission Date: 20141002
  Serious: Yes (Life-Threatening, Hospitalization)
  Sender: FDA-Public Use
  Company Number: PT-B.I. PHARMACEUTICALS,INC./RIDGEFIELD-2014-BI-01007PO

PATIENT
  Age: 78 Year
  Sex: Female

DRUGS (8)
  1. PRADAXA [Suspect]
     Indication: ATRIAL FIBRILLATION
     Dosage: 220 MG
     Dates: start: 201307, end: 20140102
  2. ADROVANCE / ALENDRONIC ACID AND COLECALCIFEROL [Concomitant]
  3. VILDAGLIPTIN [Concomitant]
  4. BISOPROLOL [Concomitant]
  5. FUROSEMIDE [Concomitant]
  6. AMLODIPINE [Concomitant]
  7. ALLOPURINOL [Concomitant]
  8. LEVOTHYROXINE [Concomitant]

REACTIONS (6)
  - Ischaemic stroke [Not Recovered/Not Resolved]
  - Dysarthria [Not Recovered/Not Resolved]
  - Hemiparesis [Not Recovered/Not Resolved]
  - Anaemia [Not Recovered/Not Resolved]
  - Coagulopathy [Not Recovered/Not Resolved]
  - Renal impairment [Not Recovered/Not Resolved]
